FAERS Safety Report 7736546-8 (Version None)
Quarter: 2011Q3

REPORT INFORMATION
  Report Type: 
  Country: None (occurrence: None)
  Receive Date: 20110908
  Receipt Date: 20110829
  Transmission Date: 20111222
  Serious: Yes (Other)
  Sender: FDA-Public Use
  Company Number: US-BAYER-2011-048231

PATIENT
  Age: 36 Year
  Sex: Female
  Weight: 75 kg

DRUGS (5)
  1. DROSPIRENONE AND ETHINYL ESTRADIOL [Suspect]
     Dosage: UNK
     Dates: start: 20050101, end: 20090101
  2. PRILOSEC [Concomitant]
     Dosage: UNK UNK, QD
     Route: 048
  3. IMODIUM [Concomitant]
     Indication: ABDOMINAL PAIN
  4. IMODIUM [Concomitant]
     Indication: DIARRHOEA
  5. SYNTHROID [Concomitant]
     Indication: HYPOTHYROIDISM
     Dosage: UNK UNK, QD
     Route: 048
     Dates: start: 20050101

REACTIONS (4)
  - INJURY [None]
  - CHOLECYSTITIS CHRONIC [None]
  - PAIN [None]
  - GALLBLADDER DISORDER [None]
